FAERS Safety Report 5024224-8 (Version None)
Quarter: 2006Q2

REPORT INFORMATION
  Report Type: 
  Country: None (occurrence: None)
  Receive Date: 20060613
  Receipt Date: 20060602
  Transmission Date: 20061013
  Serious: Yes (Hospitalization)
  Sender: FDA-Public Use
  Company Number: PHBS2006PT08451

PATIENT
  Age: 38 Year
  Sex: Female

DRUGS (1)
  1. TEGRETOL T12565+TAB [Suspect]
     Route: 048
     Dates: start: 19981201, end: 19990101

REACTIONS (9)
  - ALANINE AMINOTRANSFERASE INCREASED [None]
  - ANAL ULCER [None]
  - GAMMA-GLUTAMYLTRANSFERASE INCREASED [None]
  - GASTRITIS [None]
  - HEPATIC FUNCTION ABNORMAL [None]
  - MUCOSAL ULCERATION [None]
  - RASH [None]
  - RASH MACULO-PAPULAR [None]
  - VAGINAL ULCERATION [None]
